FAERS Safety Report 21016318 (Version 1)
Quarter: 2022Q2

REPORT INFORMATION
  Report Type: Spontaneous
  Country: US (occurrence: None)
  Receive Date: 20220627
  Receipt Date: 20220627
  Transmission Date: 20220721
  Serious: Yes (Hospitalization)
  Sender: FDA-Public Use
  Company Number: None

PATIENT
  Age: 38 Year
  Sex: Male
  Weight: 123 kg

DRUGS (1)
  1. ACETAMINOPHEN [Suspect]
     Active Substance: ACETAMINOPHEN
     Indication: Pain

REACTIONS (6)
  - Transaminases increased [None]
  - Abdominal pain [None]
  - Nausea [None]
  - Vomiting [None]
  - Incorrect dose administered [None]
  - Overdose [None]

NARRATIVE: CASE EVENT DATE: 20220606
